FAERS Safety Report 12608505 (Version 4)
Quarter: 2016Q3

REPORT INFORMATION
  Report Type: Spontaneous
  Country: TW (occurrence: TW)
  Receive Date: 20160729
  Receipt Date: 20160819
  Transmission Date: 20161109
  Serious: Yes (Other)
  Sender: FDA-Public Use
  Company Number: ALCN2016TW005189

PATIENT
  Age: 72 Year
  Sex: Male

DRUGS (4)
  1. ACETAZOLAMIDE. [Suspect]
     Active Substance: ACETAZOLAMIDE
     Indication: INTRAOCULAR PRESSURE INCREASED
     Route: 048
  2. TRAVOPROST [Suspect]
     Active Substance: TRAVOPROST
     Indication: INTRAOCULAR PRESSURE INCREASED
     Route: 047
  3. TIMOLOL FALCON [Suspect]
     Active Substance: TIMOLOL
     Indication: INTRAOCULAR PRESSURE INCREASED
     Route: 047
  4. BRIMONIDINE [Suspect]
     Active Substance: BRIMONIDINE TARTRATE
     Indication: INTRAOCULAR PRESSURE INCREASED
     Route: 047

REACTIONS (5)
  - Drug ineffective [Recovered/Resolved]
  - Syncope [Unknown]
  - Bundle branch block right [Unknown]
  - Hypertension [Unknown]
  - Cardiac arrest [Recovered/Resolved]
